FAERS Safety Report 19612580 (Version 2)
Quarter: 2021Q3

REPORT INFORMATION
  Report Type: Spontaneous
  Country: IT (occurrence: IT)
  Receive Date: 20210727
  Receipt Date: 20210824
  Transmission Date: 20211014
  Serious: Yes (Hospitalization)
  Sender: FDA-Public Use
  Company Number: IT-SUN PHARMACEUTICAL INDUSTRIES LTD-2021R1-305340

PATIENT
  Age: 19 Year
  Sex: Female

DRUGS (2)
  1. CLOZAPINE. [Suspect]
     Active Substance: CLOZAPINE
     Dosage: 125 MILLIGRAM, BID
     Route: 065
  2. CLOZAPINE. [Suspect]
     Active Substance: CLOZAPINE
     Indication: SCHIZOPHRENIA
     Dosage: 200 MILLIGRAM/ DIE
     Route: 048
     Dates: start: 20180117, end: 20190403

REACTIONS (1)
  - Merycism [Recovered/Resolved]

NARRATIVE: CASE EVENT DATE: 20190213
